FAERS Safety Report 4927725-3 (Version None)
Quarter: 2006Q1

REPORT INFORMATION
  Report Type: 
  Country: None (occurrence: None)
  Receive Date: 20060228
  Receipt Date: 20051017
  Transmission Date: 20060701
  Serious: Yes (Hospitalization)
  Sender: FDA-Public Use
  Company Number: US-MERCK-0510USA07729

PATIENT
  Age: 72 Year
  Sex: Male

DRUGS (8)
  1. VIOXX [Suspect]
     Route: 048
     Dates: start: 20001110, end: 20011113
  2. PRILOSEC [Concomitant]
     Route: 065
  3. HYDROCHLOROTHIAZIDE [Concomitant]
     Route: 065
  4. BAYER ENTERIC ASPIRIN [Concomitant]
     Route: 065
  5. SINEMET CR [Concomitant]
     Route: 065
  6. SINEMET [Concomitant]
     Route: 065
  7. LIPITOR [Concomitant]
     Route: 065
  8. HYDROCHLOROTHIAZIDE AND TRIAMTERENE [Concomitant]
     Route: 065

REACTIONS (31)
  - ANAEMIA [None]
  - ASTHENIA [None]
  - BENIGN PROSTATIC HYPERPLASIA [None]
  - BLOOD TESTOSTERONE DECREASED [None]
  - BRAIN STEM INFARCTION [None]
  - CAROTID ARTERY OCCLUSION [None]
  - CAROTID ARTERY STENOSIS [None]
  - CATARACT [None]
  - CEREBROVASCULAR ACCIDENT [None]
  - CERUMEN IMPACTION [None]
  - DEPRESSION [None]
  - DIABETES MELLITUS NON-INSULIN-DEPENDENT [None]
  - DIARRHOEA [None]
  - DIVERTICULUM [None]
  - DUPUYTREN'S CONTRACTURE [None]
  - EAR INFECTION [None]
  - ERECTILE DYSFUNCTION [None]
  - FATIGUE [None]
  - HAEMATOCHEZIA [None]
  - HAEMORRHOIDS [None]
  - HYPERCHOLESTEROLAEMIA [None]
  - INSOMNIA [None]
  - LIPOMA [None]
  - MALAISE [None]
  - MONARTHRITIS [None]
  - ONYCHOMYCOSIS [None]
  - PERIPHERAL VASCULAR DISORDER [None]
  - RENAL FAILURE [None]
  - RESTLESS LEGS SYNDROME [None]
  - SINUSITIS [None]
  - TESTICULAR ATROPHY [None]
